FAERS Safety Report 5156327-1 (Version None)
Quarter: 2006Q4

REPORT INFORMATION
  Report Type: 
  Country: None (occurrence: None)
  Receive Date: 20061122
  Receipt Date: 20061030
  Transmission Date: 20070319
  Serious: Yes (Death, Hospitalization)
  Sender: FDA-Public Use
  Company Number: JP-JPN-A200604633

PATIENT
  Age: 85 Year
  Sex: Male
  Weight: 42 kg

DRUGS (7)
  1. PAXIL [Suspect]
     Indication: DEPRESSION
     Dosage: 1UNIT PER DAY
     Route: 048
     Dates: start: 20060718, end: 20060726
  2. ARICEPT [Concomitant]
     Indication: DEMENTIA ALZHEIMER'S TYPE
     Route: 048
     Dates: start: 20030101, end: 20060801
  3. HYPEN [Concomitant]
     Indication: SPINAL OSTEOARTHRITIS
     Route: 048
  4. UNKNOWN MEDICATION [Concomitant]
     Indication: SPINAL OSTEOARTHRITIS
     Route: 048
  5. BUP-4 [Concomitant]
     Indication: POLLAKIURIA
     Route: 048
  6. SELBEX [Concomitant]
     Route: 048
  7. MAGMITT [Concomitant]
     Indication: CONSTIPATION
     Route: 048

REACTIONS (6)
  - BLISTER [None]
  - DRUG ERUPTION [None]
  - DRUG HYPERSENSITIVITY [None]
  - ERYTHEMA [None]
  - HEPATIC ENZYME INCREASED [None]
  - RASH [None]
